FAERS Safety Report 18745105 (Version 1)
Quarter: 2021Q1

REPORT INFORMATION
  Report Type: Spontaneous
  Country: US (occurrence: US)
  Receive Date: 20210114
  Receipt Date: 20210114
  Transmission Date: 20210419
  Serious: Yes (Other)
  Sender: FDA-Public Use
  Company Number: None

PATIENT
  Age: 54 Year
  Sex: Male
  Weight: 47.08 kg

DRUGS (1)
  1. CHLORHEXIDINE 0.12% ORAL RINSE [Suspect]
     Active Substance: CHLORHEXIDINE
     Indication: OROPHARYNGEAL DISCOMFORT
     Route: 002
     Dates: start: 20200801, end: 20201015

REACTIONS (5)
  - Colitis ischaemic [None]
  - Suspected transmission of an infectious agent via product [None]
  - COVID-19 [None]
  - Burkholderia test positive [None]
  - Mycobacterium test positive [None]

NARRATIVE: CASE EVENT DATE: 20200930
